FAERS Safety Report 25919385 (Version 2)
Quarter: 2025Q4

REPORT INFORMATION
  Report Type: Spontaneous
  Country: US (occurrence: US)
  Receive Date: 20251014
  Receipt Date: 20251119
  Transmission Date: 20260118
  Serious: Yes (Other)
  Sender: FRESENIUS KABI
  Company Number: US-FreseniusKabi-FK202513691

PATIENT
  Age: 66 Year
  Sex: Male
  Weight: 63.5 kg

DRUGS (9)
  1. LIDOCAINE HYDROCHLORIDE [Suspect]
     Active Substance: LIDOCAINE HYDROCHLORIDE
     Indication: Cough
     Dosage: FOA: INJECTION, SOLUTION?THE PATIENT WAS ADMINISTERED 80 MG OF 2% LIDOCAINE IV.
     Route: 042
     Dates: start: 20250529
  2. KETOROLAC TROMETHAMINE [Concomitant]
     Active Substance: KETOROLAC TROMETHAMINE
     Indication: Product used for unknown indication
     Dosage: FOA: OPHTHALMIC SOLUTION
  3. glipizide XL ER 5mg [Concomitant]
     Indication: Product used for unknown indication
  4. rosuvastatin 5mg tab [Concomitant]
     Indication: Product used for unknown indication
     Dosage: FOA: TABLETS
  5. metformin 1000mg tab [Concomitant]
     Indication: Product used for unknown indication
     Dosage: FOA: TABLET
  6. BRIMONIDINE [Concomitant]
     Active Substance: BRIMONIDINE TARTRATE
     Indication: Premedication
     Dosage: FOA: OPHTHALMIC SOLUTION?INTRAOCULAR
  7. PHENYLEPHRINE HYDROCHLORIDE [Concomitant]
     Active Substance: PHENYLEPHRINE HYDROCHLORIDE
     Indication: Premedication
     Dosage: FOA: OPHTHALMIC SOLUTION?INTRAOCULAR
  8. TROPICAMIDE [Concomitant]
     Active Substance: TROPICAMIDE
     Indication: Premedication
     Dosage: FOA: OPHTHALMIC SOLUTION?INTRAOCULAR
  9. TETRACAINE HYDROCHLORIDE [Concomitant]
     Active Substance: TETRACAINE HYDROCHLORIDE
     Indication: Premedication
     Dosage: FOA: OPHTHALMIC SOLUTION?INTRAOCULAR

REACTIONS (3)
  - Hypertension [Recovered/Resolved]
  - Tachycardia [Recovered/Resolved]
  - Off label use [Unknown]

NARRATIVE: CASE EVENT DATE: 20250529
